FAERS Safety Report 5532300-6 (Version None)
Quarter: 2007Q4

REPORT INFORMATION
  Report Type: 
  Country: None (occurrence: None)
  Receive Date: 20071203
  Receipt Date: 20071127
  Transmission Date: 20080405
  Serious: Yes (Other)
  Sender: FDA-Public Use
  Company Number: PHEH2007US15199

PATIENT
  Age: 82 Year
  Sex: Male

DRUGS (1)
  1. TEKTURNA [Suspect]

REACTIONS (2)
  - CARDIAC PACEMAKER INSERTION [None]
  - HEART RATE DECREASED [None]
